FAERS Safety Report 5364885-7 (Version None)
Quarter: 2007Q2

REPORT INFORMATION
  Report Type: 
  Country: None (occurrence: None)
  Receive Date: 20070530
  Receipt Date: 20070124
  Transmission Date: 20071010
  Serious: No
  Sender: FDA-Public Use
  Company Number: 2007PV028979

PATIENT
  Age: 61 Year
  Sex: Female
  Weight: 90.7194 kg

DRUGS (3)
  1. BYETTA [Suspect]
     Indication: DIABETES MELLITUS NON-INSULIN-DEPENDENT
     Dosage: 5 MCG; BID; SC
     Route: 058
     Dates: start: 20070123
  2. ADVAIR DISKUS 100/50 [Concomitant]
  3. ALBUTEROL [Concomitant]

REACTIONS (10)
  - ANOREXIA [None]
  - ASTHENIA [None]
  - ASTHENOPIA [None]
  - BREATH ODOUR [None]
  - ENERGY INCREASED [None]
  - FEELING ABNORMAL [None]
  - INJECTION SITE WARMTH [None]
  - LACRIMATION INCREASED [None]
  - SALIVA ALTERED [None]
  - VISION BLURRED [None]
